FAERS Safety Report 9048453 (Version 1)
Quarter: 2013Q1

REPORT INFORMATION
  Report Type: Spontaneous
  Country: US (occurrence: None)
  Receive Date: 20130130
  Receipt Date: 20130130
  Transmission Date: 20140127
  Serious: Yes (Hospitalization)
  Sender: FDA-Public Use
  Company Number: None

PATIENT
  Age: 63 Year
  Sex: Male
  Weight: 106.87 kg

DRUGS (15)
  1. LOVENOX [Suspect]
     Indication: ATRIAL FIBRILLATION
     Dosage: CHRONIC X 3-4 MONTHS
     Route: 058
  2. LOVENOX [Suspect]
     Indication: PULMONARY EMBOLISM
     Dosage: CHRONIC X 3-4 MONTHS
     Route: 058
  3. CLINDAMYCIN [Concomitant]
  4. CIPRO [Concomitant]
  5. TYLENOL [Concomitant]
  6. DIGOXIN [Concomitant]
  7. SPIRIVA [Concomitant]
  8. BUDESONIDE [Concomitant]
  9. LEVOTHYROXINE [Concomitant]
  10. SIMVASTATIN [Concomitant]
  11. LOPRESSOR [Concomitant]
  12. GLIPIZIDE [Concomitant]
  13. FLUNISOLIDE [Concomitant]
  14. BACTROBAN [Concomitant]
  15. TRAMADOL [Concomitant]

REACTIONS (4)
  - Retroperitoneal haematoma [None]
  - Dyspnoea [None]
  - Oedema peripheral [None]
  - Blood creatinine increased [None]
